FAERS Safety Report 15811862 (Version 2)
Quarter: 2020Q1

REPORT INFORMATION
  Report Type: Spontaneous
  Country: GB (occurrence: GB)
  Receive Date: 20190111
  Receipt Date: 20200320
  Transmission Date: 20200409
  Serious: Yes (Hospitalization)
  Sender: FDA-Public Use
  Company Number: PHHY2019GB002857

PATIENT
  Age: 30 Year
  Sex: Female
  Weight: 80 kg

DRUGS (5)
  1. CLARITHROMYCIN. [Suspect]
     Active Substance: CLARITHROMYCIN
     Indication: HELICOBACTER INFECTION
     Dosage: 500 MG, Q12H
     Route: 048
     Dates: start: 20181121, end: 20181128
  2. AMOXICILLIN. [Concomitant]
     Active Substance: AMOXICILLIN
     Indication: HELICOBACTER INFECTION
     Dosage: 2 G, QD (FOR 7 DAYS)
     Route: 065
     Dates: start: 20181121
  3. CELLCEPT [Concomitant]
     Active Substance: MYCOPHENOLATE MOFETIL\MYCOPHENOLATE MOFETIL HYDROCHLORIDE
     Indication: KIDNEY TRANSPLANT REJECTION
     Dosage: UNK, BEEN PRESCRIBED FOR SOME YEARS NOW.
     Route: 065
  4. LANSOPRAZOLE. [Concomitant]
     Active Substance: LANSOPRAZOLE
     Indication: HELICOBACTER INFECTION
     Dosage: 60 MG, QD (FOR 7 DAYS)
     Route: 065
     Dates: start: 20181121
  5. ADOPORT [Suspect]
     Active Substance: TACROLIMUS
     Indication: KIDNEY TRANSPLANT REJECTION
     Dosage: 1.5 MG, Q12H (BEEN PRESCRIBED FOR SOME YEARS NOW)
     Route: 048

REACTIONS (6)
  - Labelled drug-drug interaction medication error [Unknown]
  - Nephropathy toxic [Recovered/Resolved]
  - Acute kidney injury [Recovered/Resolved]
  - Pancreatitis acute [Recovered/Resolved]
  - Drug level increased [Recovered/Resolved]
  - Abdominal pain [Unknown]

NARRATIVE: CASE EVENT DATE: 20181127
